FAERS Safety Report 7570925-7 (Version None)
Quarter: 2011Q2

REPORT INFORMATION
  Report Type: 
  Country: None (occurrence: None)
  Receive Date: 20110525
  Receipt Date: 20110422
  Transmission Date: 20111010
  Serious: No
  Sender: FDA-Public Use
  Company Number: 327224

PATIENT
  Age: 68 Year
  Sex: Female

DRUGS (1)
  1. VICTOZA [Suspect]
     Indication: TYPE 2 DIABETES MELLITUS
     Dosage: SUBCUTANEOUS
     Route: 058
     Dates: start: 20100101

REACTIONS (7)
  - BALANCE DISORDER [None]
  - EAR INFECTION [None]
  - MALAISE [None]
  - TYMPANIC MEMBRANE PERFORATION [None]
  - COUGH [None]
  - NASAL CONGESTION [None]
  - INFLUENZA [None]
